FAERS Safety Report 15120764 (Version 2)
Quarter: 2019Q1

REPORT INFORMATION
  Report Type: Report from Study
  Country: US (occurrence: US)
  Receive Date: 20180709
  Receipt Date: 20190212
  Transmission Date: 20190417
  Serious: No
  Sender: FDA-Public Use
  Company Number: US-SA-2018SA167461

PATIENT
  Age: 72 Year
  Sex: Female

DRUGS (2)
  1. INSULIN GLARGINE [Suspect]
     Active Substance: INSULIN GLARGINE
     Indication: DIABETES MELLITUS
     Dosage: 30 U, QD
     Route: 058
  2. METFORMIN [Concomitant]
     Active Substance: METFORMIN HYDROCHLORIDE

REACTIONS (7)
  - Ocular hyperaemia [Unknown]
  - Eating disorder [Unknown]
  - Viral infection [Not Recovered/Not Resolved]
  - Eye pain [Unknown]
  - Blood glucose increased [Unknown]
  - Bedridden [Unknown]
  - Visual impairment [Unknown]
